FAERS Safety Report 9916593 (Version 1)
Quarter: 2014Q1

REPORT INFORMATION
  Report Type: Spontaneous
  Country: US (occurrence: None)
  Receive Date: 20140219
  Receipt Date: 20140219
  Transmission Date: 20141002
  Serious: Yes (Hospitalization)
  Sender: FDA-Public Use
  Company Number: AUR-APL-2014-01854

PATIENT
  Sex: Female

DRUGS (2)
  1. METFORMIN [Suspect]
  2. VALSARTAN [Suspect]

REACTIONS (3)
  - Acidosis [None]
  - Acute prerenal failure [None]
  - Hyperkalaemia [None]
